FAERS Safety Report 5199151-6 (Version None)
Quarter: 2007Q1

REPORT INFORMATION
  Report Type: 
  Country: None (occurrence: None)
  Receive Date: 20070104
  Receipt Date: 20061228
  Transmission Date: 20070707
  Serious: Yes (Other)
  Sender: FDA-Public Use
  Company Number: FR-PFIZER INC-2006127218

PATIENT
  Sex: Male
  Weight: 103 kg

DRUGS (6)
  1. LYRICA [Suspect]
     Indication: NEURALGIA
     Route: 048
  2. LYRICA [Suspect]
     Indication: PAIN
  3. BACLOFEN [Concomitant]
     Indication: PAIN
     Route: 048
  4. FENOFIBRATE [Concomitant]
     Indication: HYPERCHOLESTEROLAEMIA
     Dosage: DAILY DOSE:160MG-FREQ:DAILY
     Route: 048
  5. SECTRAL [Concomitant]
     Indication: HYPERTENSION
     Dosage: DAILY DOSE:200MG-FREQ:DAILY
     Route: 048
  6. LEXOMIL [Concomitant]
     Indication: ANXIETY
     Route: 048

REACTIONS (1)
  - DIABETES MELLITUS [None]
